FAERS Safety Report 6502980-7 (Version None)
Quarter: 2009Q4

REPORT INFORMATION
  Report Type: 
  Country: None (occurrence: None)
  Receive Date: 20091217
  Receipt Date: 20091214
  Transmission Date: 20100525
  Serious: Yes (Death)
  Sender: FDA-Public Use
  Company Number: PHEH2009US16111

PATIENT
  Sex: Female

DRUGS (6)
  1. EXJADE [Suspect]
     Indication: ACUTE MYELOID LEUKAEMIA
     Dosage: 750 MG, DAILY
     Route: 048
     Dates: start: 20091111, end: 20091119
  2. EXJADE [Suspect]
     Indication: IRON OVERLOAD
  3. OXYCONTIN [Concomitant]
     Indication: PAIN
     Dosage: 20 MG, TID
     Route: 048
     Dates: start: 20090801
  4. CARVEDILOL [Concomitant]
     Dosage: 3125 MG, QD
     Route: 048
  5. LASIX [Concomitant]
     Dosage: 20 MG, QD
     Route: 048
  6. ALLOPURINOL [Concomitant]
     Dosage: 300 MG, QD
     Route: 048

REACTIONS (4)
  - DYSPNOEA [None]
  - MALIGNANT NEOPLASM PROGRESSION [None]
  - PNEUMONIA [None]
  - WHEEZING [None]
